FAERS Safety Report 19143156 (Version 1)
Quarter: 2021Q2

REPORT INFORMATION
  Report Type: Report from Study
  Country: None (occurrence: RO)
  Receive Date: 20210416
  Receipt Date: 20210416
  Transmission Date: 20210717
  Serious: Yes (Other)
  Sender: FDA-Public Use
  Company Number: RO-ABBVIE-21K-135-3858340-00

PATIENT
  Age: 54 Year
  Sex: Male

DRUGS (1)
  1. HUMIRA [Suspect]
     Active Substance: ADALIMUMAB
     Indication: ANKYLOSING SPONDYLITIS
     Route: 058
     Dates: start: 20160101

REACTIONS (6)
  - Asthenia [Not Recovered/Not Resolved]
  - COVID-19 [Recovered/Resolved]
  - Respiratory failure [Not Recovered/Not Resolved]
  - Traumatic lung injury [Not Recovered/Not Resolved]
  - Hyperhidrosis [Not Recovered/Not Resolved]
  - COVID-19 [Recovered/Resolved with Sequelae]

NARRATIVE: CASE EVENT DATE: 2020
